FAERS Safety Report 9262360 (Version 2)
Quarter: 2013Q2

REPORT INFORMATION
  Report Type: Spontaneous
  Country: US (occurrence: US)
  Receive Date: 20130430
  Receipt Date: 20130502
  Transmission Date: 20140414
  Serious: No
  Sender: FDA-Public Use
  Company Number: US-009507513-1304USA016496

PATIENT
  Age: 16 Year
  Sex: Female
  Weight: 51.7 kg

DRUGS (3)
  1. NEXPLANON [Suspect]
     Indication: MENSTRUAL CYCLE MANAGEMENT
     Dosage: UNK
     Route: 059
     Dates: start: 20130220
  2. ZYRTEC [Concomitant]
  3. TOPAMAX [Concomitant]

REACTIONS (1)
  - Menstruation irregular [Unknown]
